FAERS Safety Report 7191324-6 (Version None)
Quarter: 2010Q4

REPORT INFORMATION
  Report Type: 
  Country: None (occurrence: None)
  Receive Date: 20101223
  Receipt Date: 20101210
  Transmission Date: 20110411
  Serious: Yes (Hospitalization)
  Sender: FDA-Public Use
  Company Number: FR-CELGENEUS-056-21880-10121373

PATIENT
  Sex: Male
  Weight: 67.3 kg

DRUGS (7)
  1. REVLIMID [Suspect]
     Indication: MULTIPLE MYELOMA
     Route: 048
     Dates: start: 20101025, end: 20101114
  2. REVLIMID [Suspect]
     Route: 048
     Dates: start: 20101123, end: 20101207
  3. NEORECORMON [Suspect]
     Indication: MULTIPLE MYELOMA
     Route: 058
     Dates: start: 20101025, end: 20101213
  4. EXJADE [Concomitant]
     Route: 048
     Dates: start: 20100318
  5. ATARAX [Concomitant]
     Indication: ANXIETY
     Route: 048
     Dates: start: 20101101
  6. DUPHALAC [Concomitant]
     Indication: CONSTIPATION
     Route: 048
     Dates: start: 20101106
  7. KARDEGIC [Concomitant]
     Indication: PROPHYLAXIS
     Route: 048
     Dates: start: 20101022, end: 20101208

REACTIONS (4)
  - DEMENTIA [None]
  - FEBRILE NEUTROPENIA [None]
  - LUNG DISORDER [None]
  - RENAL FAILURE [None]
